FAERS Safety Report 16246807 (Version 1)
Quarter: 2019Q2

REPORT INFORMATION
  Report Type: Spontaneous
  Country: IE (occurrence: IE)
  Receive Date: 20190427
  Receipt Date: 20190427
  Transmission Date: 20190711
  Serious: Yes (Other)
  Sender: FDA-Public Use
  Company Number: IE-AMGEN-IRLSP2019064277

PATIENT
  Age: 50 Year
  Sex: Female

DRUGS (37)
  1. URSODEOXYCHOLIC ACID [Concomitant]
     Active Substance: URSODIOL
     Dosage: 500 MILLIGRAM, BID
  2. POLYACRYLIC ACID [Concomitant]
     Dosage: UNK, QD
  3. NEXIUM [Concomitant]
     Active Substance: ESOMEPRAZOLE MAGNESIUM
     Dosage: 40 MILLIGRAM, BID
  4. LANSOPRAZOLE. [Concomitant]
     Active Substance: LANSOPRAZOLE
     Dosage: 30 MILLIGRAM, QD
  5. DULCOLAX (BISACODYL) [Concomitant]
     Active Substance: BISACODYL
     Dosage: 5 MILLIGRAM, BID
  6. IDEOS [Concomitant]
     Active Substance: CALCIUM CARBONATE\CHOLECALCIFEROL
     Dosage: 500MG/400IU, BID
     Route: 048
  7. SPIRIVA [Concomitant]
     Active Substance: TIOTROPIUM BROMIDE MONOHYDRATE
     Dosage: 2.5 MICROGRAM, BID
  8. FOLIC ACID. [Concomitant]
     Active Substance: FOLIC ACID
     Dosage: 5 MILLIGRAM, QD
  9. DRYNOL [Concomitant]
     Dosage: 20 MILLIGRAM, QD
  10. ANAPEN [EPINEPHRINE] [Concomitant]
     Dosage: 300 MICROGRAM PER 0.3 MILLILITRE, QD
  11. VENTOLIN [Concomitant]
     Active Substance: ALBUTEROL SULFATE
     Dosage: 200 MICROGRAM, QID
  12. IBUPROFEN. [Concomitant]
     Active Substance: IBUPROFEN
     Dosage: 400 MILLIGRAM, BID
  13. SENNA [SENNA ALEXANDRINA] [Concomitant]
     Active Substance: SENNA LEAF
     Dosage: 2-4 DOSAGE FORM (7.5 MG/TABLET), QD
  14. PROLIA [Suspect]
     Active Substance: DENOSUMAB
     Indication: PRODUCT USED FOR UNKNOWN INDICATION
     Dosage: 60 MILLIGRAM
     Route: 058
     Dates: start: 20190404
  15. HYLO-FORTE [Concomitant]
     Active Substance: HYALURONATE SODIUM
     Dosage: 7.5 MILLILITER, QID
  16. PARACETAMOL [Concomitant]
     Active Substance: ACETAMINOPHEN
     Dosage: 500 MILLIGRAM, BID
  17. SERC [BETAHISTINE HYDROCHLORIDE] [Concomitant]
     Dosage: 8 MILLIGRAM, TID
  18. BACLOFEN. [Concomitant]
     Active Substance: BACLOFEN
     Dosage: 10 MILLIGRAM, BID
  19. CITALOPRAM [Concomitant]
     Active Substance: CITALOPRAM HYDROBROMIDE
     Dosage: 20 MILLIGRAM, QD
  20. ZITHROMAX [Concomitant]
     Active Substance: AZITHROMYCIN DIHYDRATE
     Dosage: 250 MILLIGRAM, QWK
  21. STERIMAR [SODIUM CHLORIDE;WATER] [Concomitant]
     Dosage: UNK, QD
     Route: 045
  22. LACTULOSE FRESENIUS [Concomitant]
     Dosage: 15 MILLILITER, TID
     Route: 048
  23. MOVICOL [Concomitant]
     Active Substance: POLYETHYLENE GLYCOL 3350\POTASSIUM CHLORIDE\SODIUM BICARBONATE\SODIUM CHLORIDE
     Dosage: 13.8 GRAM, QD
     Route: 048
  24. VANIQA [EFLORNITHINE] [Concomitant]
     Dosage: 1 DOSAGE FORM (1 APPLICATION), QD
  25. BETNOVATE [Concomitant]
     Active Substance: BETAMETHASONE
     Dosage: 1 APPLICATION (0.03%), TID
  26. PREGABALIN. [Concomitant]
     Active Substance: PREGABALIN
     Dosage: 50 MILLIGRAM, BID
  27. ETOFLAM [ETOFENAMATE] [Concomitant]
     Dosage: ONE APPLICATE, TID
  28. BISACODYL. [Concomitant]
     Active Substance: BISACODYL
     Dosage: 5 MILLIGRAM, BID
  29. FLUTICASONE FUROATE [Concomitant]
     Active Substance: FLUTICASONE FUROATE
     Dosage: 27.5 MICROGRAM
  30. MONTELUKAST SODIUM. [Concomitant]
     Active Substance: MONTELUKAST SODIUM
     Dosage: 10 MILLIGRAM, QD
  31. PREGABALIN. [Concomitant]
     Active Substance: PREGABALIN
     Dosage: 200 MILLIGRAM, BID
  32. DOMPERIDONE [Concomitant]
     Active Substance: DOMPERIDONE
     Dosage: 10 MILLIGRAM, BID
  33. AVAMYS [Concomitant]
     Active Substance: FLUTICASONE FUROATE
     Dosage: 27.5 MILLIGRAM/SPRAY, BID
     Route: 045
  34. SALBUTAMOL [Concomitant]
     Active Substance: ALBUTEROL
     Dosage: UNK UNK, AS NECESSARY, EVERY 6 HOURS
  35. RANITIDINE. [Concomitant]
     Active Substance: RANITIDINE
     Dosage: 150 MILLIGRAM, BID
  36. FLUTICASONE;VILANTEROL [Concomitant]
     Active Substance: FLUTICASONE FUROATE\VILANTEROL TRIFENATATE
     Dosage: 1 PUFF, QD
  37. IMIGRAN [SUMATRIPTAN SUCCINATE] [Concomitant]
     Active Substance: SUMATRIPTAN SUCCINATE
     Indication: MIGRAINE
     Dosage: 50 MILLIGRAM (1-2 TABS AT ONSET OF MIGRAINE)

REACTIONS (5)
  - Dizziness [Not Recovered/Not Resolved]
  - Vertigo [Not Recovered/Not Resolved]
  - Injection site pain [Not Recovered/Not Resolved]
  - Migraine [Not Recovered/Not Resolved]
  - Nausea [Not Recovered/Not Resolved]

NARRATIVE: CASE EVENT DATE: 20190404
